FAERS Safety Report 8562021 (Version 2)
Quarter: 2014Q1

REPORT INFORMATION
  Report Type: Spontaneous
  Country: US (occurrence: US)
  Receive Date: 20120515
  Receipt Date: 20140106
  Transmission Date: 20141002
  Serious: Yes (Hospitalization)
  Sender: FDA-Public Use
  Company Number: US-JNJFOC-20120507163

PATIENT
  Age: 62 Year
  Sex: Female
  Weight: 86.18 kg

DRUGS (6)
  1. UNSPECIFIED FENTANYL [Suspect]
     Indication: PAIN
     Route: 062
     Dates: end: 2012
  2. DURAGESIC [Suspect]
     Indication: PAIN
     Route: 062
     Dates: start: 201202
  3. OXYCODONE [Concomitant]
     Indication: PAIN
     Dosage: EVERY 4-6 HOURS
     Route: 048
     Dates: start: 2006
  4. PROZAC [Concomitant]
     Indication: DEPRESSION
     Route: 048
     Dates: start: 2006
  5. LAMICTAL [Concomitant]
     Indication: DRUG THERAPY
     Route: 048
     Dates: start: 2009
  6. KLONOPIN [Concomitant]
     Indication: SLEEP DISORDER
     Route: 048
     Dates: start: 2011

REACTIONS (5)
  - Neoplasm malignant [Not Recovered/Not Resolved]
  - Nephrolithiasis [Unknown]
  - Procedural pain [Not Recovered/Not Resolved]
  - Drug administered at inappropriate site [Unknown]
  - Product quality issue [Unknown]
